FAERS Safety Report 5054359-5 (Version None)
Quarter: 2006Q2

REPORT INFORMATION
  Report Type: 
  Country: None (occurrence: None)
  Receive Date: 20060616
  Receipt Date: 20060525
  Transmission Date: 20061013
  Serious: Yes (Other)
  Sender: FDA-Public Use
  Company Number: 224801

PATIENT
  Age: 42 Year
  Sex: Male

DRUGS (14)
  1. AVASTIN [Suspect]
     Indication: COLORECTAL CANCER METASTATIC
     Dosage: SEE IMAGE
     Dates: start: 20060123, end: 20060206
  2. AVASTIN [Suspect]
     Indication: COLORECTAL CANCER METASTATIC
     Dosage: SEE IMAGE
     Dates: start: 20060220, end: 20060303
  3. AVASTIN [Suspect]
     Indication: COLORECTAL CANCER METASTATIC
     Dosage: SEE IMAGE
     Dates: start: 20060320, end: 20060419
  4. AVASTIN [Suspect]
  5. FLUOROURACIL [Concomitant]
  6. LEUCOVORIN CALCIUM [Concomitant]
  7. OXALIPLATIN (OXALIPLATIN) [Concomitant]
  8. MEFOXIN [Concomitant]
  9. LOVENOX [Concomitant]
  10. DURAGESIC-100 [Concomitant]
  11. NEXIUM [Concomitant]
  12. MORPHINE [Concomitant]
  13. MIRALAX [Concomitant]
  14. COMPAZINE [Concomitant]

REACTIONS (1)
  - POST PROCEDURAL HAEMORRHAGE [None]
